FAERS Safety Report 8893715 (Version 2)
Quarter: 2012Q4

REPORT INFORMATION
  Report Type: 
  Country: FR (occurrence: FR)
  Receive Date: 20121108
  Receipt Date: 20121123
  Transmission Date: 20130627
  Serious: Yes (Other)
  Sender: FDA-Public Use
  Company Number: FR-JNJFOC-20121102443

PATIENT

DRUGS (2)
  1. INFLIXIMAB, RECOMBINANT [Suspect]
     Indication: HIDRADENITIS
     Dosage: 0, 2, 6 and then every 4 weeks
     Route: 042
  2. INFLIXIMAB, RECOMBINANT [Suspect]
     Indication: HIDRADENITIS
     Dosage: 0, 2, 6 and then every 4 weeks
     Route: 042

REACTIONS (1)
  - Keratoacanthoma [Unknown]
